FAERS Safety Report 10070009 (Version 1)
Quarter: 2014Q2

REPORT INFORMATION
  Report Type: Spontaneous
  Country: US (occurrence: US)
  Receive Date: 20140410
  Receipt Date: 20140410
  Transmission Date: 20141212
  Serious: Yes (Hospitalization, Other)
  Sender: FDA-Public Use
  Company Number: US-009507513-1404USA002975

PATIENT
  Age: 69 Year
  Sex: Male

DRUGS (2)
  1. PROSCAR [Suspect]
     Indication: BENIGN PROSTATIC HYPERPLASIA
     Dosage: 5 MG, QD
     Route: 048
     Dates: start: 2009, end: 20140327
  2. AVODART [Concomitant]

REACTIONS (4)
  - Prostate cancer stage III [Recovering/Resolving]
  - Metastases to soft tissue [Unknown]
  - Metastases to bone [Unknown]
  - Prostatectomy [Recovering/Resolving]
